FAERS Safety Report 23097221 (Version 7)
Quarter: 2025Q2

REPORT INFORMATION
  Report Type: Spontaneous
  Country: US (occurrence: US)
  Receive Date: 20231023
  Receipt Date: 20250528
  Transmission Date: 20250716
  Serious: Yes (Life-Threatening, Hospitalization, Other)
  Sender: PFIZER
  Company Number: US-MLMSERVICE-20231005-4591098-1

PATIENT
  Age: 45 Year
  Sex: Male

DRUGS (18)
  1. FENTANYL CITRATE [Interacting]
     Active Substance: FENTANYL CITRATE
     Indication: Analgesic therapy
     Route: 041
  2. FENTANYL CITRATE [Interacting]
     Active Substance: FENTANYL CITRATE
     Indication: Sedation
     Route: 042
  3. FENTANYL CITRATE [Interacting]
     Active Substance: FENTANYL CITRATE
  4. FENTANYL CITRATE [Interacting]
     Active Substance: FENTANYL CITRATE
  5. SUBOXONE [Interacting]
     Active Substance: BUPRENORPHINE HYDROCHLORIDE\NALOXONE HYDROCHLORIDE
     Indication: Drug use disorder
     Dosage: 16 MG/4 MG
  6. AMITRIPTYLINE [Interacting]
     Active Substance: AMITRIPTYLINE
     Indication: Antidepressant therapy
     Dosage: 75 MG, DAILY
  7. AMITRIPTYLINE [Interacting]
     Active Substance: AMITRIPTYLINE
     Indication: Drug use disorder
  8. PREGABALIN [Interacting]
     Active Substance: PREGABALIN
     Indication: Antidepressant therapy
     Dosage: 200 MG THREE TIMES A DAY FOR SEVERAL WEEKS
  9. PREGABALIN [Interacting]
     Active Substance: PREGABALIN
     Indication: Drug use disorder
  10. PROPOFOL [Concomitant]
     Active Substance: PROPOFOL
     Indication: Sedation
  11. PROPOFOL [Concomitant]
     Active Substance: PROPOFOL
     Indication: Endotracheal intubation
  12. PROPOFOL [Concomitant]
     Active Substance: PROPOFOL
  13. PROPOFOL [Concomitant]
     Active Substance: PROPOFOL
  14. CEFTRIAXONE [Concomitant]
     Active Substance: CEFTRIAXONE
     Indication: Antibiotic therapy
     Route: 042
  15. CEFTRIAXONE [Concomitant]
     Active Substance: CEFTRIAXONE
     Dosage: 2 G, 2X/DAY (Q12H)
     Route: 042
  16. AZITHROMYCIN [Concomitant]
     Active Substance: AZITHROMYCIN
     Route: 048
  17. AMPICILLIN [Concomitant]
     Active Substance: AMPICILLIN
     Indication: Antibiotic therapy
     Dosage: 2 G, 4X/DAY (EVERY 6 HOURS)
     Route: 042
  18. ACYCLOVIR [Concomitant]
     Active Substance: ACYCLOVIR
     Indication: Antibiotic therapy
     Route: 042

REACTIONS (2)
  - Drug interaction [Recovering/Resolving]
  - Serotonin syndrome [Recovered/Resolved]
